FAERS Safety Report 20361349 (Version 1)
Quarter: 2022Q1

REPORT INFORMATION
  Report Type: Spontaneous
  Country: US (occurrence: None)
  Receive Date: 20220120
  Receipt Date: 20220120
  Transmission Date: 20220423
  Serious: Yes (Other)
  Sender: FDA-Public Use
  Company Number: None

PATIENT
  Age: 43 Year
  Sex: Male

DRUGS (1)
  1. HUMIRA [Suspect]
     Active Substance: ADALIMUMAB

REACTIONS (5)
  - Dizziness [None]
  - Confusional state [None]
  - Chills [None]
  - White blood cell count decreased [None]
  - Injection related reaction [None]

NARRATIVE: CASE EVENT DATE: 20220119
